FAERS Safety Report 19425015 (Version 1)
Quarter: 2021Q2

REPORT INFORMATION
  Report Type: Spontaneous
  Country: US (occurrence: US)
  Receive Date: 20210617
  Receipt Date: 20210617
  Transmission Date: 20210717
  Serious: No
  Sender: FDA-Public Use
  Company Number: US-ROCHE-2784175

PATIENT

DRUGS (1)
  1. ACTEMRA [Suspect]
     Active Substance: TOCILIZUMAB
     Indication: COVID-19
     Dosage: 400MG/20 ML VIAL ;ONGOING: UNKNOWN
     Route: 042

REACTIONS (4)
  - Off label use [Unknown]
  - Product storage error [Unknown]
  - Intentional product use issue [Unknown]
  - No adverse event [Unknown]
